FAERS Safety Report 9014454 (Version 1)
Quarter: 2013Q1

REPORT INFORMATION
  Report Type: Spontaneous
  Country: US (occurrence: US)
  Receive Date: 20130115
  Receipt Date: 20130115
  Transmission Date: 20140127
  Serious: Yes (Hospitalization)
  Sender: FDA-Public Use
  Company Number: US-GLAXOSMITHKLINE-A0882103A

PATIENT
  Age: 52 Year
  Sex: Female
  Weight: 93.2 kg

DRUGS (1)
  1. AVANDAMET [Suspect]
     Indication: DIABETES MELLITUS
     Route: 048

REACTIONS (3)
  - Coronary artery disease [Recovering/Resolving]
  - Cardiac failure congestive [Unknown]
  - Oedema [Unknown]
